FAERS Safety Report 9624103 (Version 2)
Quarter: 2014Q1

REPORT INFORMATION
  Report Type: Report from Study
  Country: GB (occurrence: GB)
  Receive Date: 20131015
  Receipt Date: 20140128
  Transmission Date: 20141002
  Serious: Yes (Hospitalization, Disabling)
  Sender: FDA-Public Use
  Company Number: GB-ROCHE-1288821

PATIENT
  Sex: Male
  Weight: 99 kg

DRUGS (12)
  1. RITUXIMAB [Suspect]
     Indication: RHEUMATOID ARTHRITIS
     Dosage: LAST DOSE PRIOR TO SAE: 17/JAN/2013
     Route: 065
     Dates: start: 20100902
  2. SULPHASALAZINE [Concomitant]
     Route: 065
  3. GABAPENTIN [Concomitant]
  4. FUROSEMIDE [Concomitant]
  5. ESOMEPRAZOLE [Concomitant]
  6. ASPIRIN [Concomitant]
  7. PERINDOPRIL [Concomitant]
  8. FERROUS FUMARATE [Concomitant]
  9. FLUOXETIN [Concomitant]
  10. TEMAZEPAM [Concomitant]
  11. PREDNISONE [Concomitant]
     Route: 065
  12. BACITRACIN [Concomitant]

REACTIONS (3)
  - Chronic obstructive pulmonary disease [Recovered/Resolved]
  - Arthralgia [Not Recovered/Not Resolved]
  - Spinal column stenosis [Not Recovered/Not Resolved]
